FAERS Safety Report 7191438-0 (Version None)
Quarter: 2010Q4

REPORT INFORMATION
  Report Type: 
  Country: None (occurrence: None)
  Receive Date: 20101223
  Receipt Date: 20101216
  Transmission Date: 20110411
  Serious: Yes (Other)
  Sender: FDA-Public Use
  Company Number: US-US-EMD SERONO, INC.-233721J09USA

PATIENT
  Sex: Female

DRUGS (6)
  1. REBIF [Suspect]
     Indication: MULTIPLE SCLEROSIS
  2. REBIF [Suspect]
     Route: 058
     Dates: start: 20090801, end: 20090101
  3. REBIF [Suspect]
     Route: 058
     Dates: start: 20090101, end: 20091028
  4. BETASERON [Suspect]
     Indication: MULTIPLE SCLEROSIS
  5. ANTIVERT [Concomitant]
     Indication: DIZZINESS
  6. ANTIVERT [Concomitant]
     Indication: VERTIGO

REACTIONS (1)
  - RENAL CANCER [None]
